FAERS Safety Report 8128362-2 (Version None)
Quarter: 2012Q1

REPORT INFORMATION
  Report Type: 
  Country: None (occurrence: None)
  Receive Date: 20120210
  Receipt Date: 20120206
  Transmission Date: 20120608
  Serious: Yes (Death, Hospitalization)
  Sender: FDA-Public Use
  Company Number: US-GILEAD-2012-0048891

PATIENT
  Sex: Female

DRUGS (3)
  1. ADCIRCA [Concomitant]
  2. REMODULIN [Concomitant]
  3. LETAIRIS [Suspect]
     Indication: PULMONARY ARTERIAL HYPERTENSION
     Dosage: 10 MG, UNK
     Route: 048
     Dates: start: 20110519, end: 20120203

REACTIONS (4)
  - RIGHT VENTRICULAR FAILURE [None]
  - DYSPNOEA [None]
  - CHEST PAIN [None]
  - DEATH [None]
